FAERS Safety Report 5067408-5 (Version None)
Quarter: 2006Q3

REPORT INFORMATION
  Report Type: 
  Country: None (occurrence: None)
  Receive Date: 20060727
  Receipt Date: 20060719
  Transmission Date: 20061208
  Serious: Yes (Life-Threatening)
  Sender: FDA-Public Use
  Company Number: 2006-01867

PATIENT
  Sex: Female
  Weight: 79 kg

DRUGS (5)
  1. VELCADE [Suspect]
     Indication: MULTIPLE MYELOMA
     Dosage: 1.30 MG/M2, INTRAVENOUS
     Route: 042
     Dates: start: 20060609, end: 20060703
  2. BENDAMUSTINE (BENDAMUSTINE HYDROCHLORIDE) SOLUTION (EXCEPT SYRUP), 25 [Suspect]
     Indication: MULTIPLE MYELOMA
     Dosage: 60.00 MG, INTRAVENOUS
     Route: 042
     Dates: start: 20060609, end: 20060701
  3. METOCLOPRAMIDE [Concomitant]
  4. BUPRENORPHINE HCL [Concomitant]
  5. PANTOPRAZOLE SODIUM [Concomitant]

REACTIONS (2)
  - ILL-DEFINED DISORDER [None]
  - THROMBOCYTOPENIA [None]
